FAERS Safety Report 5712944-9 (Version None)
Quarter: 2008Q2

REPORT INFORMATION
  Report Type: 
  Country: None (occurrence: None)
  Receive Date: 20080421
  Receipt Date: 20080421
  Transmission Date: 20081010
  Serious: Yes (Hospitalization, Other)
  Sender: FDA-Public Use
  Company Number: None

PATIENT
  Age: 84 Year
  Sex: Male
  Weight: 63.05 kg

DRUGS (1)
  1. TRAZODONE HCL [Suspect]
     Dosage: 100 MG AT BEDTIME PO
     Route: 048
     Dates: start: 20070925, end: 20080126

REACTIONS (2)
  - RASH ERYTHEMATOUS [None]
  - RASH PRURITIC [None]
